FAERS Safety Report 7130507-8 (Version None)
Quarter: 2010Q4

REPORT INFORMATION
  Report Type: 
  Country: None (occurrence: None)
  Receive Date: 20101201
  Receipt Date: 20101125
  Transmission Date: 20110411
  Serious: Yes (Hospitalization)
  Sender: FDA-Public Use
  Company Number: FR-BRISTOL-MYERS SQUIBB COMPANY-15409592

PATIENT
  Age: 47 Year
  Sex: Female

DRUGS (4)
  1. ABILIFY [Suspect]
     Route: 048
  2. CLOZAPINE [Concomitant]
  3. ZYPREXA [Concomitant]
  4. BENZODIAZEPINE [Concomitant]

REACTIONS (1)
  - RESPIRATORY DISTRESS [None]
